FAERS Safety Report 6819554-0 (Version None)
Quarter: 2010Q3

REPORT INFORMATION
  Report Type: 
  Country: None (occurrence: None)
  Receive Date: 20100707
  Receipt Date: 20100628
  Transmission Date: 20110219
  Serious: No
  Sender: FDA-Public Use
  Company Number: CA-ASTRAZENECA-2010SE23859

PATIENT
  Age: 68 Year
  Sex: Male

DRUGS (7)
  1. CRESTOR [Suspect]
     Indication: HYPERCHOLESTEROLAEMIA
     Route: 048
     Dates: start: 20100419
  2. SYNTHROID [Concomitant]
  3. ASPIRIN [Concomitant]
  4. NAPROXEN [Concomitant]
  5. PROSCAR [Concomitant]
  6. ALLOPURINOL [Concomitant]
  7. VITAMIN B-12 [Concomitant]

REACTIONS (1)
  - WEIGHT DECREASED [None]
